FAERS Safety Report 8504216 (Version 2)
Quarter: 2013Q2

REPORT INFORMATION
  Report Type: Spontaneous
  Country: US (occurrence: None)
  Receive Date: 20120327
  Receipt Date: 20120709
  Transmission Date: 20140414
  Serious: Yes (Other)
  Sender: FDA-Public Use
  Company Number: PHEH2009US05511

PATIENT
  Sex: Female

DRUGS (4)
  1. GLEEVEC [Suspect]
     Indication: CHRONIC MYELOID LEUKAEMIA
     Dosage: 400;300 MG/DAY, ORAL
     Route: 048
     Dates: start: 200812
  2. COUMADIN [Concomitant]
  3. DIGOXIN (DIGOXIN) [Concomitant]
  4. FLECAINIDE ACETATE [Concomitant]

REACTIONS (13)
  - PANCYTOPENIA [None]
  - PERIORBITAL DISORDER [None]
  - NEUTROPENIA [None]
  - Bone marrow failure [None]
  - Eye disorder [None]
  - Lacrimation increased [None]
  - Ocular hyperaemia [None]
  - Dry throat [None]
  - Dysphonia [None]
  - Eyelid oedema [None]
  - Fatigue [None]
  - Back pain [None]
  - Sinusitis [None]
